FAERS Safety Report 9442261 (Version 1)
Quarter: 2013Q3

REPORT INFORMATION
  Report Type: Other
  Country: DK (occurrence: TR)
  Receive Date: 20130806
  Receipt Date: 20130806
  Transmission Date: 20140515
  Serious: Yes (Other)
  Sender: FDA-Public Use
  Company Number: TR-FRI-1000047502

PATIENT
  Age: 29 Year
  Sex: Female

DRUGS (4)
  1. ESCITALOPRAM [Suspect]
     Dosage: ESTIMATED INGESTED DOSE
  2. QUETIAPINE [Suspect]
     Dosage: ESTIMATED INGESTED DOSE
  3. AMOXICILLIN [Suspect]
     Dosage: ESTIMATED INGESTED DOSE
  4. IBUPROFEN [Suspect]
     Dosage: ESTIMATED INGESTED DOSE

REACTIONS (5)
  - Suicide attempt [Recovered/Resolved]
  - Depressed level of consciousness [Recovered/Resolved]
  - Tachycardia [Recovered/Resolved]
  - Hypotension [Recovered/Resolved]
  - Intentional overdose [Recovered/Resolved]
